FAERS Safety Report 13201700 (Version 1)
Quarter: 2017Q1

REPORT INFORMATION
  Report Type: Spontaneous
  Country: US (occurrence: US)
  Receive Date: 20170208
  Receipt Date: 20170208
  Transmission Date: 20170428
  Serious: No
  Sender: FDA-Public Use
  Company Number: US-AMGEN-USASP2016070132

PATIENT

DRUGS (3)
  1. NEULASTA [Suspect]
     Active Substance: PEGFILGRASTIM
     Indication: PRODUCT USED FOR UNKNOWN INDICATION
     Dosage: UNK
     Route: 065
  2. CYRAMZA [Concomitant]
     Active Substance: RAMUCIRUMAB
  3. TAXOTERE [Concomitant]
     Active Substance: DOCETAXEL

REACTIONS (4)
  - Fatigue [Unknown]
  - Asthenia [Unknown]
  - Back pain [Unknown]
  - Mobility decreased [Unknown]
